FAERS Safety Report 11294469 (Version 1)
Quarter: 2015Q3

REPORT INFORMATION
  Report Type: Spontaneous
  Country: US (occurrence: US)
  Receive Date: 20150722
  Receipt Date: 20150722
  Transmission Date: 20151125
  Serious: No
  Sender: FDA-Public Use
  Company Number: US-ELI_LILLY_AND_COMPANY-US200805003630

PATIENT
  Age: 62 Year
  Sex: Female

DRUGS (2)
  1. EVISTA [Suspect]
     Active Substance: RALOXIFENE HYDROCHLORIDE
     Indication: INTRADUCTAL PROLIFERATIVE BREAST LESION
     Dosage: 60 MG, UNK
     Dates: start: 200803, end: 20080515
  2. EFFEXOR [Concomitant]
     Active Substance: VENLAFAXINE HYDROCHLORIDE
     Dosage: UNK, UNK
     Dates: start: 200803

REACTIONS (9)
  - Feeling abnormal [Recovering/Resolving]
  - Pain [Recovering/Resolving]
  - Hyperhidrosis [Recovering/Resolving]
  - Nonspecific reaction [Recovering/Resolving]
  - Erythema [Recovering/Resolving]
  - Hot flush [Recovered/Resolved]
  - Impaired work ability [Recovering/Resolving]
  - Feeling hot [Recovering/Resolving]
  - Personality disorder [Recovering/Resolving]

NARRATIVE: CASE EVENT DATE: 200803
